FAERS Safety Report 5353854-9 (Version None)
Quarter: 2007Q2

REPORT INFORMATION
  Report Type: 
  Country: None (occurrence: None)
  Receive Date: 20070608
  Receipt Date: 20070518
  Transmission Date: 20071010
  Serious: Yes (Hospitalization)
  Sender: FDA-Public Use
  Company Number: ENTC2007-0042

PATIENT
  Age: 77 Year
  Sex: Male
  Weight: 78.9 kg

DRUGS (11)
  1. STALEVO 100 [Suspect]
     Indication: PARKINSON'S DISEASE
     Dosage: 400 MG, 4 IN 1 D, ORAL
     Route: 048
     Dates: start: 20061223, end: 20070207
  2. ASPIRIN [Concomitant]
  3. KLONOPIN [Concomitant]
  4. COQ10 [Concomitant]
  5. RHINOCORT [Concomitant]
  6. DETROL [Concomitant]
  7. METOLAZONE [Concomitant]
  8. TERAZOSIN HCL [Concomitant]
  9. ZAROXOLYN [Concomitant]
  10. NIZORAL [Concomitant]
  11. MIRALAX [Concomitant]

REACTIONS (8)
  - ANOREXIA [None]
  - DEHYDRATION [None]
  - DIARRHOEA [None]
  - FLATULENCE [None]
  - GASTROENTERITIS [None]
  - HYPOKALAEMIA [None]
  - MAGNESIUM DEFICIENCY [None]
  - NAUSEA [None]
